FAERS Safety Report 5807255-7 (Version None)
Quarter: 2008Q3

REPORT INFORMATION
  Report Type: 
  Country: None (occurrence: None)
  Receive Date: 20080711
  Receipt Date: 20080709
  Transmission Date: 20090109
  Serious: Yes (Hospitalization, Other)
  Sender: FDA-Public Use
  Company Number: ES-ASTRAZENECA-2008AC01737

PATIENT
  Age: 45 Month
  Sex: Male
  Weight: 17 kg

DRUGS (1)
  1. EMLA [Suspect]
     Indication: LOCAL ANAESTHESIA
     Route: 061

REACTIONS (2)
  - METHAEMOGLOBINAEMIA [None]
  - OVERDOSE [None]
